FAERS Safety Report 5545712-1 (Version None)
Quarter: 2007Q4

REPORT INFORMATION
  Report Type: 
  Country: None (occurrence: None)
  Receive Date: 20071211
  Receipt Date: 20070129
  Transmission Date: 20080405
  Serious: No
  Sender: FDA-Public Use
  Company Number: US-AMGEN-KDL208996

PATIENT
  Sex: Female

DRUGS (3)
  1. ENBREL [Suspect]
     Indication: RHEUMATOID ARTHRITIS
     Dates: start: 20070110
  2. METHOTREXATE [Concomitant]
     Dates: start: 20060601
  3. PLAQUENIL [Concomitant]
     Dates: start: 19970101

REACTIONS (2)
  - ABSCESS ORAL [None]
  - IMPAIRED HEALING [None]
